FAERS Safety Report 10395931 (Version 2)
Quarter: 2015Q1

REPORT INFORMATION
  Report Type: Spontaneous
  Country: US (occurrence: US)
  Receive Date: 20140820
  Receipt Date: 20150202
  Transmission Date: 20150720
  Serious: Yes (Other)
  Sender: FDA-Public Use
  Company Number: US-BAYER-2014-124157

PATIENT
  Age: 23 Year
  Sex: Female
  Weight: 73.47 kg

DRUGS (1)
  1. MIRENA [Suspect]
     Active Substance: LEVONORGESTREL
     Indication: CONTRACEPTION
     Dosage: 20 MCG/24HR, CONT
     Route: 015
     Dates: start: 20100607, end: 20110615

REACTIONS (9)
  - Uterine perforation [None]
  - Device dislocation [None]
  - Abdominal pain [None]
  - Device dislocation [None]
  - Injury [None]
  - Uterine perforation [None]
  - Pain [None]
  - Device difficult to use [None]
  - Device issue [None]

NARRATIVE: CASE EVENT DATE: 20101116
